FAERS Safety Report 6102953-2 (Version None)
Quarter: 2009Q1

REPORT INFORMATION
  Report Type: 
  Country: None (occurrence: None)
  Receive Date: 20090305
  Receipt Date: 20090219
  Transmission Date: 20090719
  Serious: Yes (Other)
  Sender: FDA-Public Use
  Company Number: PHHY2009DE06791

PATIENT
  Age: 49 Year

DRUGS (3)
  1. MYFORTIC [Suspect]
     Dosage: 720 MG/DAY
     Route: 048
  2. DIOVAN HCT [Suspect]
     Dosage: UNK
     Route: 048
     Dates: start: 20060101
  3. TORSEMIDE [Concomitant]
     Indication: OEDEMA
     Dosage: UNK
     Route: 048
     Dates: start: 20060101

REACTIONS (9)
  - BLOOD CHOLESTEROL INCREASED [None]
  - BLOOD PRESSURE INCREASED [None]
  - BLOOD TRIGLYCERIDES INCREASED [None]
  - FABRY'S DISEASE [None]
  - HYPERLIPIDAEMIA [None]
  - OEDEMA [None]
  - PRURITUS [None]
  - RASH [None]
  - SKIN DISORDER [None]
